FAERS Safety Report 4844210-8 (Version None)
Quarter: 2005Q4

REPORT INFORMATION
  Report Type: 
  Country: None (occurrence: None)
  Receive Date: 20051202
  Receipt Date: 20051130
  Transmission Date: 20060501
  Serious: Yes (Other)
  Sender: FDA-Public Use
  Company Number: US-GLAXOSMITHKLINE-A0584117A

PATIENT
  Age: 33 Year
  Sex: Female

DRUGS (5)
  1. WELLBUTRIN XL [Suspect]
     Indication: DEPRESSION
     Dosage: 150MG PER DAY
     Route: 048
     Dates: start: 20051001
  2. MICARDIS [Concomitant]
  3. LO/OVRAL [Concomitant]
  4. NASONEX [Concomitant]
  5. ALAVERT [Concomitant]

REACTIONS (2)
  - AGGRESSION [None]
  - ANGER [None]
